FAERS Safety Report 9927657 (Version 1)
Quarter: 2014Q1

REPORT INFORMATION
  Report Type: Spontaneous
  Country: US (occurrence: US)
  Receive Date: 20140227
  Receipt Date: 20140227
  Transmission Date: 20141002
  Serious: No
  Sender: FDA-Public Use
  Company Number: US-BIOGENIDEC-2014BI018414

PATIENT
  Age: 52 Year
  Sex: Female

DRUGS (6)
  1. AVONEX [Suspect]
     Indication: MULTIPLE SCLEROSIS
     Route: 030
     Dates: start: 20140207
  2. AMANTADINE HCL [Concomitant]
  3. BUPROPION HCL ER (SR) [Concomitant]
  4. CARISOPRODOL [Concomitant]
  5. CITALOPRAM HYDROBROMIDE [Concomitant]
  6. NAPROXEN [Concomitant]

REACTIONS (2)
  - Injection site bruising [Unknown]
  - Injection site pain [Unknown]
